FAERS Safety Report 15233260 (Version 1)
Quarter: 2018Q4

REPORT INFORMATION
  Report Type: Spontaneous
  Country: US (occurrence: US)
  Receive Date: 20180802
  Receipt Date: 20180802
  Transmission Date: 20190204
  Serious: No
  Sender: FDA-Public Use
  Company Number: US-ENDO PHARMACEUTICALS INC-2017-009162

PATIENT
  Sex: Male

DRUGS (1)
  1. HYDROCODONE BITARTRATE / ACETAMINOPHEN ORAL SOL 7.5MG/325MG PER 15ML [Suspect]
     Active Substance: ACETAMINOPHEN\HYDROCODONE BITARTRATE
     Indication: PROCEDURAL PAIN
     Dosage: 15 ML, Q4H
     Route: 048
     Dates: start: 20171213

REACTIONS (2)
  - Drug ineffective [Unknown]
  - Prescribed overdose [Unknown]

NARRATIVE: CASE EVENT DATE: 20171213
